FAERS Safety Report 8157208-1 (Version None)
Quarter: 2012Q1

REPORT INFORMATION
  Report Type: 
  Country: None (occurrence: None)
  Receive Date: 20120222
  Receipt Date: 20120207
  Transmission Date: 20120608
  Serious: Yes (Other)
  Sender: FDA-Public Use
  Company Number: FR-MEDIMMUNE-MEDI-0014955

PATIENT
  Sex: Female

DRUGS (3)
  1. FUROSEMIDE [Concomitant]
     Route: 048
     Dates: start: 20110906
  2. UVESTEROL [Concomitant]
     Route: 048
     Dates: start: 20111130
  3. SYNAGIS [Suspect]
     Indication: HEART DISEASE CONGENITAL

REACTIONS (1)
  - BODY TEMPERATURE DECREASED [None]
